FAERS Safety Report 24710141 (Version 1)
Quarter: 2024Q4

REPORT INFORMATION
  Report Type: Spontaneous
  Country: US (occurrence: US)
  Receive Date: 20241209
  Receipt Date: 20241209
  Transmission Date: 20250114
  Serious: Yes (Hospitalization, Other)
  Sender: ZYDUS PHARM
  Company Number: US-CADILA HEALTHCARE LIMITED-US-ZYDUS-115781

PATIENT

DRUGS (9)
  1. LAMOTRIGINE [Suspect]
     Active Substance: LAMOTRIGINE
     Indication: Major depression
     Dosage: 150 MILLIGRAM, QD
     Route: 065
  2. LAMOTRIGINE [Suspect]
     Active Substance: LAMOTRIGINE
     Dosage: 300 MILLIGRAM, QD
     Route: 065
  3. SERTRALINE [Suspect]
     Active Substance: SERTRALINE HYDROCHLORIDE
     Indication: Major depression
     Dosage: 50 MILLIGRAM, QD
     Route: 065
  4. BUPROPION [Suspect]
     Active Substance: BUPROPION
     Indication: Major depression
     Dosage: UNK
     Route: 065
  5. DULOXETINE [Suspect]
     Active Substance: DULOXETINE
     Indication: Major depression
     Dosage: UNK
     Route: 065
  6. VENLAFAXINE [Suspect]
     Active Substance: VENLAFAXINE HYDROCHLORIDE
     Indication: Major depression
     Dosage: UNK
     Route: 065
  7. LITHIUM [Suspect]
     Active Substance: LITHIUM
     Indication: Major depression
     Dosage: 450 MILLIGRAM, QD
     Route: 065
  8. CITALOPRAM [Concomitant]
     Active Substance: CITALOPRAM
     Indication: Major depression
     Dosage: 20 MILLIGRAM, QD
     Route: 065
  9. CITALOPRAM [Concomitant]
     Active Substance: CITALOPRAM
     Dosage: 40 MILLIGRAM, QD
     Route: 065

REACTIONS (5)
  - Cognitive disorder [Unknown]
  - Restlessness [Unknown]
  - Dysphoria [Unknown]
  - Drug ineffective [Unknown]
  - Maternal exposure during pregnancy [Unknown]
